FAERS Safety Report 4716305-0 (Version None)
Quarter: 2005Q3

REPORT INFORMATION
  Report Type: 
  Country: None (occurrence: None)
  Receive Date: 20050711
  Receipt Date: 20040915
  Transmission Date: 20060218
  Serious: Yes (Hospitalization)
  Sender: FDA-Public Use
  Company Number: 380461

PATIENT
  Age: 43 Year
  Sex: Male

DRUGS (13)
  1. MYCOPHENOLATE MOFETIL (MYCOPHENOLATE MOFETIL) [Suspect]
     Indication: IMMUNOSUPPRESSION
  2. MYCOPHENOLATE MOFETIL (MYCOPHENOLATE MOFETIL) [Suspect]
     Indication: PROPHYLAXIS AGAINST TRANSPLANT REJECTION
  3. FK506 (TACROLIMUS) [Suspect]
     Indication: IMMUNOSUPPRESSION
  4. FK506 (TACROLIMUS) [Suspect]
     Indication: PROPHYLAXIS AGAINST TRANSPLANT REJECTION
  5. PREDNISONE [Concomitant]
  6. STEROID (STEROID NOS) [Concomitant]
  7. BASILIXIMAB (BASILIXIMAB) [Concomitant]
  8. CLONIDINE [Concomitant]
  9. ATENOLOL [Concomitant]
  10. DOXAZOSIN MESYLATE [Concomitant]
  11. PANTOPRAZOLE SODIUM [Concomitant]
  12. ERTYROPOIETIN RECOMBINANT (EPOETIN NOS) [Concomitant]
  13. VALACICLOVIR (VALACYCLOVIR HYDROCHLORIDE) [Concomitant]

REACTIONS (3)
  - COMPLICATIONS OF TRANSPLANTED KIDNEY [None]
  - CYSTITIS [None]
  - POLYOMAVIRUS INTERSTITIAL NEPHRITIS [None]
